FAERS Safety Report 24622852 (Version 1)
Quarter: 2024Q4

REPORT INFORMATION
  Report Type: Report from Study
  Country: FR (occurrence: FR)
  Receive Date: 20241115
  Receipt Date: 20241115
  Transmission Date: 20250115
  Serious: Yes (Other)
  Sender: CELLTRION
  Company Number: FR-ROCHE-3564948

PATIENT

DRUGS (6)
  1. RITUXIMAB [Suspect]
     Active Substance: RITUXIMAB
     Indication: Encephalitis autoimmune
     Dosage: 4 INFUSION CUMULATIVE DOSE 2250 MG^
     Route: 042
  2. METHYLPREDNISOLONE [Concomitant]
     Active Substance: METHYLPREDNISOLONE
     Dosage: MAXIMUM 1000 MG/INFUSION*3 DAYS
  3. OBINUTUZUMAB [Concomitant]
     Active Substance: OBINUTUZUMAB
     Dosage: 1ST INFUSION
  4. OBINUTUZUMAB [Concomitant]
     Active Substance: OBINUTUZUMAB
     Dosage: 2ND INFUSION
  5. COTRIMOXAZOLE [Concomitant]
     Active Substance: SULFAMETHOXAZOLE\TRIMETHOPRIM
  6. TOCILIZUMAB [Concomitant]
     Active Substance: TOCILIZUMAB

REACTIONS (2)
  - Neutropenia [Unknown]
  - Intentional product use issue [Unknown]
